FAERS Safety Report 7055576-5 (Version None)
Quarter: 2010Q4

REPORT INFORMATION
  Report Type: 
  Country: None (occurrence: None)
  Receive Date: 20101021
  Receipt Date: 20101013
  Transmission Date: 20110411
  Serious: Yes (Hospitalization)
  Sender: FDA-Public Use
  Company Number: PHHO2010DE15578

PATIENT
  Sex: Female
  Weight: 62 kg

DRUGS (6)
  1. NO TREATMENT RECEIVED NOMED [Suspect]
  2. SANDIMMUNE [Suspect]
     Indication: RENAL TRANSPLANT
     Dosage: 110 MG, BID
     Dates: start: 20091109
  3. URBASON [Concomitant]
  4. MYFORTIC [Concomitant]
  5. DELIX [Concomitant]
  6. AMLODIPINE [Concomitant]

REACTIONS (4)
  - ANGINA PECTORIS [None]
  - CONCOMITANT DISEASE PROGRESSION [None]
  - HYPERTENSIVE CRISIS [None]
  - MALIGNANT HYPERTENSION [None]
